FAERS Safety Report 4742087-2 (Version None)
Quarter: 2005Q3

REPORT INFORMATION
  Report Type: 
  Country: None (occurrence: None)
  Receive Date: 20050808
  Receipt Date: 20050721
  Transmission Date: 20060218
  Serious: Yes (Hospitalization, Other)
  Sender: FDA-Public Use
  Company Number: GBS050517493

PATIENT
  Age: 56 Year
  Sex: Male
  Weight: 56 kg

DRUGS (9)
  1. TERIPARATIDE [Suspect]
     Indication: BONE DENSITY DECREASED
     Dosage: 20 UG
     Dates: start: 20050228, end: 20050422
  2. METHOTREXATE [Concomitant]
  3. ETORICOXIB [Concomitant]
  4. WARFARIN [Concomitant]
  5. LANSOPRAZOLE [Concomitant]
  6. CALCICHEW D3 FORTE [Concomitant]
  7. FOLIC ACID [Concomitant]
  8. AMILORIDE HCL AND HYDROCHLOROTHIAZIDE [Concomitant]
  9. PREDNISOLONE [Concomitant]

REACTIONS (3)
  - HYPOCALCAEMIA [None]
  - MOUTH ULCERATION [None]
  - PHARYNGEAL ULCERATION [None]
